FAERS Safety Report 5935415-3 (Version None)
Quarter: 2008Q4

REPORT INFORMATION
  Report Type: 
  Country: None (occurrence: None)
  Receive Date: 20081030
  Receipt Date: 20081017
  Transmission Date: 20090506
  Serious: Yes (Other)
  Sender: FDA-Public Use
  Company Number: US-ELI_LILLY_AND_COMPANY-US200810004208

PATIENT
  Sex: Female

DRUGS (11)
  1. FORTEO [Suspect]
     Indication: SPINAL FRACTURE
     Dosage: 20 UG, DAILY (1/D)
     Dates: start: 20080418
  2. TOPROL-XL [Concomitant]
     Dosage: 25 MG, DAILY (1/D)
  3. FOSAMAX [Concomitant]
     Dosage: 70 MG, WEEKLY (1/W)
  4. PAXIL [Concomitant]
     Dosage: 20 MG, 2/W
  5. WELLBUTRIN XL [Concomitant]
     Dosage: 150 MG, DAILY (1/D)
  6. GAVISCON                                /GFR/ [Concomitant]
     Dosage: UNK, AS NEEDED
  7. NEXIUM [Concomitant]
     Dates: end: 20080401
  8. ZANTAC [Concomitant]
     Dates: start: 20081017
  9. LORAZEPAM [Concomitant]
     Dosage: 1 MG, AS NEEDED
  10. CLINDAMYCIN HCL [Concomitant]
     Indication: ANTIBIOTIC PROPHYLAXIS
     Dosage: UNK, OTHER
  11. CALCIUM [Concomitant]

REACTIONS (2)
  - ANXIETY [None]
  - UTERINE CANCER [None]
